FAERS Safety Report 9379667 (Version 1)
Quarter: 2013Q3

REPORT INFORMATION
  Report Type: Spontaneous
  Country: IT (occurrence: IT)
  Receive Date: 20130702
  Receipt Date: 20130702
  Transmission Date: 20140515
  Serious: Yes (Hospitalization)
  Sender: FDA-Public Use
  Company Number: IT-FRI-1000046322

PATIENT
  Age: 18 Year
  Sex: Female

DRUGS (1)
  1. FOSFOMYCIN [Suspect]
     Dosage: 1 DF
     Route: 048
     Dates: start: 20130220, end: 20130220

REACTIONS (1)
  - Urticaria [Recovering/Resolving]
